FAERS Safety Report 5688974-2 (Version None)
Quarter: 2008Q1

REPORT INFORMATION
  Report Type: 
  Country: None (occurrence: None)
  Receive Date: 20080331
  Receipt Date: 20070112
  Transmission Date: 20080703
  Serious: Yes (Death)
  Sender: FDA-Public Use
  Company Number: DE-ROCHE-478229

PATIENT
  Age: 50 Year
  Sex: Male

DRUGS (3)
  1. DIAZEPAM [Suspect]
     Indication: DRUG USE FOR UNKNOWN INDICATION
     Route: 042
     Dates: start: 19950101
  2. MORPHINE [Concomitant]
     Indication: TUMOUR PAIN
     Dosage: DOSAGE REGIMEN REPORTED AS ^HIGH DOSES^
     Route: 030
  3. PETHIDIN [Concomitant]
     Indication: TUMOUR PAIN
     Dosage: DOSAGE REGIMEN REPORTED AS ^HIGH DOSES^
     Route: 058

REACTIONS (1)
  - DEATH [None]
